FAERS Safety Report 4269872-8 (Version None)
Quarter: 2004Q1

REPORT INFORMATION
  Report Type: 
  Country: None (occurrence: None)
  Receive Date: 20040112
  Receipt Date: 20040112
  Transmission Date: 20041129
  Serious: Yes (Hospitalization)
  Sender: FDA-Public Use
  Company Number: None

PATIENT
  Age: 62 Year
  Sex: Male
  Weight: 81.6 kg

DRUGS (2)
  1. LITHIUM CARBONATE [Suspect]
     Indication: BIPOLAR DISORDER
     Dosage: 600MG, 300 MG BID ORAL
     Route: 048
     Dates: start: 20030903, end: 20031006
  2. LISINOPRIL [Concomitant]

REACTIONS (1)
  - DRUG TOXICITY [None]
